FAERS Safety Report 20060788 (Version 2)
Quarter: 2022Q1

REPORT INFORMATION
  Report Type: Report from Study
  Country: DE (occurrence: DE)
  Receive Date: 20211112
  Receipt Date: 20220127
  Transmission Date: 20220424
  Serious: Yes (Other)
  Sender: FDA-Public Use
  Company Number: DE-AMGEN-DEUNI2021174932

PATIENT
  Age: 71 Year
  Sex: Female
  Weight: 61 kg

DRUGS (12)
  1. PANITUMUMAB [Suspect]
     Active Substance: PANITUMUMAB
     Indication: Colorectal cancer metastatic
     Dosage: 366 MILLIGRAM
     Route: 042
     Dates: start: 20191212
  2. PANITUMUMAB [Suspect]
     Active Substance: PANITUMUMAB
     Dosage: 342 MILLIGRAM
     Route: 042
     Dates: start: 20200715
  3. PANITUMUMAB [Suspect]
     Active Substance: PANITUMUMAB
     Dosage: 354 MILLIGRAM
     Route: 042
     Dates: start: 20200923
  4. PANITUMUMAB [Suspect]
     Active Substance: PANITUMUMAB
     Dosage: 366 MILLIGRAM
     Route: 042
     Dates: start: 20201221
  5. PANITUMUMAB [Suspect]
     Active Substance: PANITUMUMAB
     Dosage: 384 MILLIGRAM
     Route: 042
     Dates: start: 20210215
  6. PANITUMUMAB [Suspect]
     Active Substance: PANITUMUMAB
     Dosage: 366 MILLIGRAM
     Route: 042
     Dates: start: 20210301
  7. PANITUMUMAB [Suspect]
     Active Substance: PANITUMUMAB
     Dosage: 384 MILLIGRAM
     Route: 042
     Dates: start: 20210315
  8. OXALIPLATIN [Suspect]
     Active Substance: OXALIPLATIN
     Indication: Colorectal cancer metastatic
     Dosage: 140 MILLIGRAM
     Route: 065
     Dates: start: 20191112
  9. LEUCOVORIN [Suspect]
     Active Substance: LEUCOVORIN
     Indication: Colorectal cancer metastatic
     Dosage: 659 MILLIGRAM
     Route: 065
     Dates: start: 20191112
  10. FLUOROURACIL [Suspect]
     Active Substance: FLUOROURACIL
     Indication: Colorectal cancer metastatic
     Dosage: 659 MILLIGRAM
     Route: 040
     Dates: start: 20191112
  11. FLUOROURACIL [Suspect]
     Active Substance: FLUOROURACIL
     Dosage: 3956 MILLIGRAM
     Route: 042
     Dates: start: 20191112
  12. VALSARTAN [Concomitant]
     Active Substance: VALSARTAN
     Indication: Hypertension
     Dosage: 160/25, QD
     Route: 048
     Dates: end: 20200302

REACTIONS (2)
  - Neutropenia [Not Recovered/Not Resolved]
  - Anaemia [Not Recovered/Not Resolved]

NARRATIVE: CASE EVENT DATE: 20200812
